FAERS Safety Report 5604217-X (Version None)
Quarter: 2008Q1

REPORT INFORMATION
  Report Type: 
  Country: None (occurrence: None)
  Receive Date: 20080123
  Receipt Date: 20080114
  Transmission Date: 20080703
  Serious: Yes (Death)
  Sender: FDA-Public Use
  Company Number: B0503143A

PATIENT
  Age: 49 Year
  Sex: Male

DRUGS (9)
  1. LAMOTRIGINE [Suspect]
     Dosage: ORAL
     Route: 048
  2. VENLAFAXINE (FORMULATION UNKNOWN) (VENLAFAXINE HYDROCHLORIDE) [Suspect]
     Dosage: ORAL
     Route: 048
  3. TRAZODONE HCL [Suspect]
     Dosage: ORAL
     Route: 048
  4. HCLTHIAZIDE+LISINOPRIL (FORMULATION UNKNOWN) (HCLTHIAZIDE+LISINOPRIL) [Suspect]
     Dosage: ORAL
     Route: 048
  5. LISINOPRIL [Suspect]
     Dosage: ORAL
     Route: 048
  6. SILDENAFIL CITRATE [Suspect]
     Dosage: ORAL
     Route: 048
  7. HYDROXYZINE [Suspect]
     Dosage: ORAL
     Route: 048
  8. FUROSEMIDE [Suspect]
     Dosage: ORAL
     Route: 048
  9. GABAPENTIN [Suspect]
     Dosage: ORAL
     Route: 048

REACTIONS (1)
  - COMPLETED SUICIDE [None]
